FAERS Safety Report 17101987 (Version 3)
Quarter: 2020Q1

REPORT INFORMATION
  Report Type: Spontaneous
  Country: GR (occurrence: GR)
  Receive Date: 20191202
  Receipt Date: 20200228
  Transmission Date: 20200409
  Serious: Yes (Other)
  Sender: FDA-Public Use
  Company Number: GR-JNJFOC-20191135807

PATIENT
  Age: 58 Year
  Sex: Male

DRUGS (5)
  1. DEXAMETHASONE. [Suspect]
     Active Substance: DEXAMETHASONE
     Indication: PLASMA CELL LEUKAEMIA
     Route: 065
     Dates: start: 2018
  2. CYCLOPHOSPHAMIDE. [Suspect]
     Active Substance: CYCLOPHOSPHAMIDE
     Indication: PLASMA CELL LEUKAEMIA
     Route: 065
  3. DARZALEX [Suspect]
     Active Substance: DARATUMUMAB
     Indication: PLASMA CELL LEUKAEMIA
     Route: 065
     Dates: start: 2018
  4. VELCADE [Suspect]
     Active Substance: BORTEZOMIB
     Indication: PLASMA CELL LEUKAEMIA
     Route: 065
     Dates: start: 2018
  5. CAELYX [Suspect]
     Active Substance: DOXORUBICIN HYDROCHLORIDE
     Indication: PLASMA CELL LEUKAEMIA
     Dosage: PEGYLATED LIPOSOMAL DOXORUBICIN HYDROCHLORIDE
     Route: 065
     Dates: start: 2018

REACTIONS (4)
  - Cytomegalovirus infection [Unknown]
  - Guillain-Barre syndrome [Recovered/Resolved]
  - Off label use [Unknown]
  - Product use in unapproved indication [Unknown]

NARRATIVE: CASE EVENT DATE: 201812
